FAERS Safety Report 18271518 (Version 11)
Quarter: 2024Q1

REPORT INFORMATION
  Report Type: Spontaneous
  Country: US (occurrence: US)
  Receive Date: 20200916
  Receipt Date: 20240112
  Transmission Date: 20240410
  Serious: Yes (Hospitalization, Disabling, Other)
  Sender: FDA-Public Use
  Company Number: US-TEVA-2020-US-1828475

PATIENT
  Age: 58 Year
  Weight: 117.93 kg

DRUGS (21)
  1. HYDROCHLOROTHIAZIDE\VALSARTAN [Suspect]
     Active Substance: HYDROCHLOROTHIAZIDE\VALSARTAN
     Indication: Hypertension
     Dosage: DOSAGE TEXT: DOSAGE: 160-12.5 MG TAB
     Route: 065
     Dates: start: 20140329, end: 20140428
  2. LOSARTAN POTASSIUM [Suspect]
     Active Substance: LOSARTAN POTASSIUM
     Indication: Hypertension
     Dosage: DOSAGE TEXT: DOSAGE: 100MG TAB
     Route: 065
     Dates: start: 20110909
  3. HYDROCHLOROTHIAZIDE\LOSARTAN [Suspect]
     Active Substance: HYDROCHLOROTHIAZIDE\LOSARTAN
     Indication: Hypertension
     Dosage: DOSAGE TEXT: DOSAGE: 100-12.5MG TAB
     Route: 065
     Dates: start: 20111224
  4. HYDROCHLOROTHIAZIDE\LOSARTAN [Suspect]
     Active Substance: HYDROCHLOROTHIAZIDE\LOSARTAN
     Indication: Hypertension
     Dosage: DOSAGE TEXT: DOSAGE: 100-12.5MG TAB
     Route: 065
     Dates: start: 20120402, end: 2013
  5. INDOMETHACIN [Concomitant]
     Active Substance: INDOMETHACIN
     Indication: Gout
     Dosage: DOSAGE TEXT: 25MG CAPSULE / 50 MG CAPSULE
     Route: 065
  6. INDOMETHACIN [Concomitant]
     Active Substance: INDOMETHACIN
     Indication: Gout
     Dosage: DOSAGE TEXT: 50 MG CAPSULE
  7. ACETAMINOPHEN\OXYCODONE HYDROCHLORIDE [Concomitant]
     Active Substance: ACETAMINOPHEN\OXYCODONE HYDROCHLORIDE
     Indication: Nephrolithiasis
  8. ACETAMINOPHEN\HYDROCODONE [Concomitant]
     Active Substance: ACETAMINOPHEN\HYDROCODONE
     Indication: Product used for unknown indication
  9. AMLODIPINE BESYLATE\OLMESARTAN MEDOXOMIL [Concomitant]
     Active Substance: AMLODIPINE BESYLATE\OLMESARTAN MEDOXOMIL
     Indication: Product used for unknown indication
     Dosage: DOSAGE TEXT: 5-40MILLIGRAM
  10. MIRTAZAPINE [Concomitant]
     Active Substance: MIRTAZAPINE
     Indication: Depression
     Dosage: DOSAGE TEXT: 7.5 MILLIGRAM
     Dates: start: 20180112, end: 20200313
  11. MIRTAZAPINE [Concomitant]
     Active Substance: MIRTAZAPINE
     Indication: Depression
     Dosage: DOSAGE TEXT: 25 MILLIGRAM
     Dates: start: 20180125
  12. HYDROCHLOROTHIAZIDE\LOSARTAN POTASSIUM [Suspect]
     Active Substance: HYDROCHLOROTHIAZIDE\LOSARTAN POTASSIUM
     Indication: Hypertension
     Dosage: DOSAGE TEXT: DOSAGE: 100- 12.5 MG TAB
     Route: 065
     Dates: start: 20111224
  13. HYDROCHLOROTHIAZIDE\VALSARTAN [Suspect]
     Active Substance: HYDROCHLOROTHIAZIDE\VALSARTAN
     Indication: Hypertension
     Dosage: DOSAGE TEXT: DOSAGE: 160 - 12.5 MG TAB
     Route: 065
     Dates: start: 20140121, end: 20140328
  14. HYDROCHLOROTHIAZIDE\VALSARTAN [Suspect]
     Active Substance: HYDROCHLOROTHIAZIDE\VALSARTAN
     Indication: Hypertension
     Dosage: DOSAGE TEXT: DOSAGE: 160 - 12.5 MG TAB
     Route: 065
     Dates: start: 20140429, end: 20140922
  15. HYDROCHLOROTHIAZIDE\VALSARTAN [Suspect]
     Active Substance: HYDROCHLOROTHIAZIDE\VALSARTAN
     Indication: Hypertension
     Dosage: DOSAGE TEXT: DOSAGE: 160 - 12.5 MG TAB
     Route: 065
     Dates: start: 20141029, end: 20141229
  16. HYDROCHLOROTHIAZIDE\VALSARTAN [Suspect]
     Active Substance: HYDROCHLOROTHIAZIDE\VALSARTAN
     Indication: Hypertension
     Dosage: DOSAGE TEXT: DOSAGE: 160 - 12.5 MG TAB
     Route: 065
     Dates: start: 20160524, end: 20170116
  17. HYDROCHLOROTHIAZIDE\VALSARTAN [Suspect]
     Active Substance: HYDROCHLOROTHIAZIDE\VALSARTAN
     Indication: Hypertension
     Dosage: DOSAGE TEXT: DOSAGE: 160 - 12.5 MG TAB
     Route: 065
     Dates: start: 20141230, end: 20160211
  18. HYDROCHLOROTHIAZIDE\VALSARTAN [Suspect]
     Active Substance: HYDROCHLOROTHIAZIDE\VALSARTAN
     Indication: Hypertension
     Dosage: DOSAGE TEXT: DOSAGE: 160 - 12.5 MG TAB
     Route: 065
     Dates: start: 20160212, end: 20160523
  19. HYDROCHLOROTHIAZIDE\VALSARTAN [Suspect]
     Active Substance: HYDROCHLOROTHIAZIDE\VALSARTAN
     Indication: Hypertension
     Dosage: DOSAGE TEXT: VALSARTAN/HYDROCHLOROTHIAZIDE JUBILANT
     Route: 065
     Dates: start: 20170117, end: 2017
  20. LOSARTAN AND HYDROCHLOROTHIAZIDE [Suspect]
     Active Substance: HYDROCHLOROTHIAZIDE\LOSARTAN POTASSIUM
     Indication: Hypertension
     Dosage: DOSAGE TEXT: DOSAGE: 100-12.5 MG TAB
     Route: 065
     Dates: start: 20111224, end: 2013
  21. VALSARTAN [Suspect]
     Active Substance: VALSARTAN
     Indication: Hypertension
     Route: 065
     Dates: start: 20170117, end: 20170701

REACTIONS (30)
  - Muscular weakness [Not Recovered/Not Resolved]
  - Motor neurone disease [Recovered/Resolved]
  - Drooling [Not Recovered/Not Resolved]
  - Respiratory muscle weakness [Not Recovered/Not Resolved]
  - Respiratory failure [Recovered/Resolved]
  - Respiratory distress [Not Recovered/Not Resolved]
  - Speech disorder [Not Recovered/Not Resolved]
  - Quadriparesis [Not Recovered/Not Resolved]
  - Muscle rupture [Not Recovered/Not Resolved]
  - Atrophy [Not Recovered/Not Resolved]
  - Weight decreased [Not Recovered/Not Resolved]
  - Muscle atrophy [Not Recovered/Not Resolved]
  - Amyotrophic lateral sclerosis [Unknown]
  - Muscle contractions involuntary [Not Recovered/Not Resolved]
  - Lung disorder [Unknown]
  - Renal disorder [Not Recovered/Not Resolved]
  - Nephrolithiasis [Recovered/Resolved]
  - Fall [Unknown]
  - Facial paresis [Unknown]
  - Eyelid ptosis [Unknown]
  - Hypopnoea [Unknown]
  - Pulmonary function test decreased [Not Recovered/Not Resolved]
  - Loss of personal independence in daily activities [Not Recovered/Not Resolved]
  - Impaired work ability [Not Recovered/Not Resolved]
  - Muscle spasms [Not Recovered/Not Resolved]
  - Muscle twitching [Not Recovered/Not Resolved]
  - Affect lability [Not Recovered/Not Resolved]
  - Dyspnoea [Not Recovered/Not Resolved]
  - Fatigue [Not Recovered/Not Resolved]
  - Dysphagia [Not Recovered/Not Resolved]

NARRATIVE: CASE EVENT DATE: 20160101
